FAERS Safety Report 8917306 (Version 4)
Quarter: 2014Q1

REPORT INFORMATION
  Report Type: Report from Study
  Country: GB (occurrence: GB)
  Receive Date: 20121120
  Receipt Date: 20140314
  Transmission Date: 20141002
  Serious: Yes (Life-Threatening, Hospitalization, Disabling, Other)
  Sender: FDA-Public Use
  Company Number: GB-INCYTE CORPORATION-2012IN002313

PATIENT
  Age: 75 Year
  Sex: Male
  Weight: 76 kg

DRUGS (7)
  1. INC424 [Suspect]
     Indication: MYELOFIBROSIS
     Dosage: 20 MG, BID
     Route: 048
     Dates: start: 20120710, end: 20120831
  2. INC424 [Suspect]
     Dosage: 25 MG, BID
     Route: 048
     Dates: start: 20120901
  3. INC424 [Suspect]
     Dosage: 20 MG, BID
     Route: 048
     Dates: end: 20120930
  4. INC424 [Suspect]
     Dosage: 20 MG, QD
     Route: 048
     Dates: start: 20121001, end: 20121001
  5. INC424 [Suspect]
     Dosage: 20 MG, BID
     Route: 048
     Dates: start: 20121002, end: 20121106
  6. ACETYLSALICYLIC ACID [Concomitant]
     Dosage: UNK
     Dates: start: 2001
  7. HYDROXYCARBAMIDE [Concomitant]
     Dosage: UNK

REACTIONS (1)
  - Progressive multifocal leukoencephalopathy [Recovering/Resolving]
